FAERS Safety Report 5082107-1 (Version None)
Quarter: 2006Q3

REPORT INFORMATION
  Report Type: 
  Country: None (occurrence: None)
  Receive Date: 20060817
  Receipt Date: 20060809
  Transmission Date: 20061208
  Serious: Yes (Death)
  Sender: FDA-Public Use
  Company Number: US-KINGPHARMUSA00001-K200601024

PATIENT
  Age: 70 Year
  Sex: Female

DRUGS (1)
  1. BICILLIN L-A [Suspect]
     Dosage: 1 DOSE , QMON
     Route: 030
     Dates: start: 20060501, end: 20060727

REACTIONS (4)
  - CEREBROVASCULAR ACCIDENT [None]
  - DEATH [None]
  - EPISTAXIS [None]
  - LOSS OF CONSCIOUSNESS [None]
